FAERS Safety Report 17229927 (Version 1)
Quarter: 2019Q4

REPORT INFORMATION
  Report Type: Spontaneous
  Country: US (occurrence: US)
  Receive Date: 20191210
  Receipt Date: 20191210
  Transmission Date: 20200122
  Serious: Yes (Hospitalization, Disabling)
  Sender: FDA-Public Use
  Company Number: None

PATIENT
  Age: 80 Year
  Sex: Female
  Weight: 67.13 kg

DRUGS (11)
  1. FERROUS SULFATE. [Concomitant]
     Active Substance: FERROUS SULFATE
  2. GARLIC. [Concomitant]
     Active Substance: GARLIC
  3. CALCIUM [Concomitant]
     Active Substance: CALCIUM
  4. SODIUM BICARB [Concomitant]
     Active Substance: SODIUM BICARBONATE
  5. ONE-A -DAU WOMENS [Concomitant]
  6. GEMFIBROZIL. [Concomitant]
     Active Substance: GEMFIBROZIL
  7. VIT D [Concomitant]
     Active Substance: VITAMIN D NOS
  8. COD LIVER OIL [Concomitant]
     Active Substance: COD LIVER OIL
  9. RANITIDINE. [Suspect]
     Active Substance: RANITIDINE
     Indication: GASTROOESOPHAGEAL REFLUX DISEASE
     Dosage: ?          QUANTITY:1 DF DOSAGE FORM;?
     Route: 048
     Dates: start: 2003, end: 20190908
  10. AMLODIPINE BESYLATE. [Concomitant]
     Active Substance: AMLODIPINE BESYLATE
  11. GLUCOSAMINE CHONDROITIN [Concomitant]
     Active Substance: CHONDROITIN SULFATE (BOVINE)\GLUCOSAMINE HYDROCHLORIDE

REACTIONS (2)
  - Renal neoplasm [None]
  - Breast cancer [None]

NARRATIVE: CASE EVENT DATE: 20120215
